FAERS Safety Report 4745739-3 (Version None)
Quarter: 2005Q3

REPORT INFORMATION
  Report Type: 
  Country: None (occurrence: None)
  Receive Date: 20050815
  Receipt Date: 20050815
  Transmission Date: 20060218
  Serious: Yes (Disabling)
  Sender: FDA-Public Use
  Company Number: None

PATIENT
  Sex: Female

DRUGS (1)
  1. ACTIQ [Suspect]
     Indication: PAIN
     Dosage: UP TO 4 TIMES A DAY PRN  (DURATION: MORE THAN 1 YEAR)

REACTIONS (4)
  - DENTAL CARIES [None]
  - DENTAL EXAMINATION ABNORMAL [None]
  - PAIN [None]
  - TOOTH LOSS [None]
